FAERS Safety Report 16483660 (Version 1)
Quarter: 2019Q2

REPORT INFORMATION
  Report Type: Report from Study
  Country: EG (occurrence: EG)
  Receive Date: 20190627
  Receipt Date: 20190627
  Transmission Date: 20190711
  Serious: Yes (Other)
  Sender: FDA-Public Use
  Company Number: EG-REGENERON PHARMACEUTICALS, INC.-2019-37982

PATIENT

DRUGS (3)
  1. EYLEA [Suspect]
     Active Substance: AFLIBERCEPT
     Indication: MACULAR OEDEMA
     Dosage: (OD) RIGHT EYE, Q1MON
     Dates: start: 201810
  2. LUCENTIS [Concomitant]
     Active Substance: RANIBIZUMAB
     Indication: MACULAR OEDEMA
     Dosage: TOOK 2 DOSES AFTER 3 DOSE OF EYLEA
  3. EYLEA [Suspect]
     Active Substance: AFLIBERCEPT
     Dosage: LAST DOSE TAKEN
     Dates: start: 20190516, end: 20190516

REACTIONS (2)
  - Macular oedema [Unknown]
  - Therapeutic product ineffective [Unknown]

NARRATIVE: CASE EVENT DATE: 201810
